FAERS Safety Report 23169093 (Version 1)
Quarter: 2023Q4

REPORT INFORMATION
  Report Type: Spontaneous
  Country: ES (occurrence: ES)
  Receive Date: 20231110
  Receipt Date: 20231110
  Transmission Date: 20240110
  Serious: Yes (Other)
  Sender: FDA-Public Use
  Company Number: ES-AEMPS-1442852

PATIENT
  Age: 48 Year
  Sex: Female
  Weight: 56 kg

DRUGS (1)
  1. MELATONIN [Suspect]
     Active Substance: MELATONIN
     Indication: Insomnia
     Dosage: UNK (1 AL D?A )
     Route: 048
     Dates: start: 20230401, end: 20230913

REACTIONS (1)
  - Hypertrichosis [Recovering/Resolving]

NARRATIVE: CASE EVENT DATE: 20230601
